FAERS Safety Report 16531254 (Version 1)
Quarter: 2019Q3

REPORT INFORMATION
  Report Type: Spontaneous
  Country: US (occurrence: US)
  Receive Date: 20190705
  Receipt Date: 20190705
  Transmission Date: 20191004
  Serious: Yes (Other)
  Sender: FDA-Public Use
  Company Number: US-PFIZER INC-2019283459

PATIENT
  Age: 31 Year
  Sex: Female
  Weight: 57.14 kg

DRUGS (3)
  1. KLONOPIN [Concomitant]
     Active Substance: CLONAZEPAM
     Dosage: UNK
  2. VENLAFAXINE HCL [Suspect]
     Active Substance: VENLAFAXINE HYDROCHLORIDE
     Dosage: 150 MG, DAILY
  3. SUBOXONE [Concomitant]
     Active Substance: BUPRENORPHINE HYDROCHLORIDE\NALOXONE HYDROCHLORIDE
     Dosage: UNK

REACTIONS (7)
  - Loss of consciousness [Unknown]
  - Abnormal behaviour [Unknown]
  - Deafness [Unknown]
  - Somnambulism [Unknown]
  - Fatigue [Unknown]
  - Amnesia [Unknown]
  - Feeling abnormal [Unknown]
